FAERS Safety Report 9672505 (Version 2)
Quarter: 2014Q1

REPORT INFORMATION
  Report Type: Spontaneous
  Country: JP (occurrence: JP)
  Receive Date: 20131106
  Receipt Date: 20140103
  Transmission Date: 20141002
  Serious: Yes (Death, Other)
  Sender: FDA-Public Use
  Company Number: JP-GILEAD-2013-0087026

PATIENT
  Age: 76 Year
  Sex: Male

DRUGS (2)
  1. AMBRISENTAN [Suspect]
     Indication: PULMONARY HYPERTENSION
     Dosage: 5 MG, UNK
     Route: 048
     Dates: start: 20131002, end: 20131009
  2. AMBRISENTAN [Suspect]
     Dosage: 2.5 MG, UNK
     Route: 048
     Dates: start: 20131010, end: 20131017

REACTIONS (3)
  - Pneumonia [Fatal]
  - Hypoacusis [Recovered/Resolved]
  - Pyrexia [Unknown]
